FAERS Safety Report 8552149 (Version 2)
Quarter: 2013Q3

REPORT INFORMATION
  Report Type: Spontaneous
  Country: US (occurrence: US)
  Receive Date: 20120508
  Receipt Date: 20130705
  Transmission Date: 20140515
  Serious: Yes (Hospitalization)
  Sender: FDA-Public Use
  Company Number: US-GLAXOSMITHKLINE-A0806192A

PATIENT
  Age: 62 Year
  Sex: Male
  Weight: 139.5 kg

DRUGS (2)
  1. AVANDIA [Suspect]
     Indication: DIABETES MELLITUS
     Route: 048
     Dates: start: 20030101, end: 20090517
  2. AVANDAMET [Suspect]
     Indication: DIABETES MELLITUS
     Route: 048
     Dates: start: 2002, end: 2005

REACTIONS (5)
  - Cardiac failure congestive [Unknown]
  - Dizziness [Unknown]
  - Angina pectoris [Unknown]
  - Myocardial infarction [Unknown]
  - Ischaemic cardiomyopathy [Unknown]
